FAERS Safety Report 15932995 (Version 3)
Quarter: 2019Q1

REPORT INFORMATION
  Report Type: Spontaneous
  Country: US (occurrence: US)
  Receive Date: 20190207
  Receipt Date: 20190305
  Transmission Date: 20190417
  Serious: No
  Sender: FDA-Public Use
  Company Number: US-BAYER-2019-027154

PATIENT
  Age: 63 Year
  Sex: Female

DRUGS (1)
  1. CLIMARA [Suspect]
     Active Substance: ESTRADIOL
     Indication: MENOPAUSAL SYMPTOMS
     Dosage: UNK
     Route: 062
     Dates: start: 201809

REACTIONS (5)
  - Wrong technique in product usage process [None]
  - Application site erythema [None]
  - Product adhesion issue [None]
  - Wrong technique in product usage process [None]
  - Product prescribing issue [None]

NARRATIVE: CASE EVENT DATE: 20190203
